FAERS Safety Report 12452639 (Version 2)
Quarter: 2017Q3

REPORT INFORMATION
  Report Type: Report from Study
  Country: JP (occurrence: JP)
  Receive Date: 20160609
  Receipt Date: 20170816
  Transmission Date: 20171127
  Serious: Yes (Hospitalization)
  Sender: FDA-Public Use
  Company Number: JP-JNJFOC-20131108489

PATIENT
  Age: 78 Year
  Sex: Male
  Weight: 64 kg

DRUGS (23)
  1. CITICOLINE [Concomitant]
     Active Substance: CITICOLINE
     Route: 065
     Dates: start: 20120807, end: 20120820
  2. OZAGREL [Concomitant]
     Active Substance: OZAGREL
     Route: 065
     Dates: start: 20130222, end: 20130222
  3. ALOSITOL [Concomitant]
     Active Substance: ALLOPURINOL
     Route: 048
  4. RIVAROXABAN [Suspect]
     Active Substance: RIVAROXABAN
     Indication: ATRIAL FIBRILLATION
     Route: 048
     Dates: start: 20120926
  5. RIVAROXABAN [Suspect]
     Active Substance: RIVAROXABAN
     Indication: THROMBOSIS PROPHYLAXIS
     Route: 048
     Dates: start: 20120810, end: 20120918
  6. RIVAROXABAN [Suspect]
     Active Substance: RIVAROXABAN
     Indication: CEREBROVASCULAR ACCIDENT PROPHYLAXIS
     Route: 048
     Dates: start: 20120926
  7. EICOSAPENTAENOIC ACID ETHYL ESTER [Concomitant]
     Active Substance: ICOSAPENT ETHYL
     Route: 048
     Dates: start: 20120918
  8. RIVAROXABAN [Suspect]
     Active Substance: RIVAROXABAN
     Indication: CEREBROVASCULAR ACCIDENT PROPHYLAXIS
     Route: 048
     Dates: start: 20120810, end: 20120918
  9. RADICUT [Concomitant]
     Active Substance: EDARAVONE
     Route: 041
     Dates: start: 20120807, end: 20120820
  10. LACTEC [Concomitant]
     Active Substance: CALCIUM CHLORIDE ANHYDROUS\POTASSIUM CHLORIDE\SODIUM CHLORIDE\SODIUM LACTATE
     Route: 065
     Dates: start: 20120807, end: 20120820
  11. CITICOLINE [Concomitant]
     Active Substance: CITICOLINE
     Route: 065
     Dates: start: 20130222, end: 20130307
  12. PLAVIX [Concomitant]
     Active Substance: CLOPIDOGREL BISULFATE
     Route: 048
     Dates: start: 20130124
  13. PLAVIX [Concomitant]
     Active Substance: CLOPIDOGREL BISULFATE
     Route: 048
     Dates: start: 20120815, end: 20120918
  14. ARTIST [Concomitant]
     Active Substance: CARVEDILOL
     Route: 048
  15. OZAGREL [Concomitant]
     Active Substance: OZAGREL
     Route: 065
     Dates: start: 20120914, end: 20120924
  16. POLAPREZINC [Concomitant]
     Active Substance: POLAPREZINC
     Indication: PROPHYLAXIS
     Route: 048
     Dates: start: 20120919, end: 20120925
  17. SEISHOKU [Concomitant]
     Active Substance: SODIUM CHLORIDE
     Route: 065
     Dates: start: 20120808, end: 20120820
  18. RIVAROXABAN [Suspect]
     Active Substance: RIVAROXABAN
     Indication: ATRIAL FIBRILLATION
     Route: 048
     Dates: start: 20120810, end: 20120918
  19. ITOROL [Concomitant]
     Active Substance: ISOSORBIDE MONONITRATE
     Route: 048
  20. FAMOTIDINE. [Concomitant]
     Active Substance: FAMOTIDINE
     Route: 048
  21. RIVAROXABAN [Suspect]
     Active Substance: RIVAROXABAN
     Indication: THROMBOSIS PROPHYLAXIS
     Route: 048
     Dates: start: 20120926
  22. PLETAAL [Concomitant]
     Active Substance: CILOSTAZOL
     Route: 048
  23. DIOVAN [Concomitant]
     Active Substance: VALSARTAN
     Route: 048

REACTIONS (3)
  - Ischaemic stroke [Recovered/Resolved]
  - Embolic stroke [Recovering/Resolving]
  - Pain in extremity [Recovered/Resolved]

NARRATIVE: CASE EVENT DATE: 20120918
